FAERS Safety Report 8114935-X (Version None)
Quarter: 2012Q1

REPORT INFORMATION
  Report Type: 
  Country: None (occurrence: None)
  Receive Date: 20120206
  Receipt Date: 20120130
  Transmission Date: 20120608
  Serious: Yes (Hospitalization, Other)
  Sender: FDA-Public Use
  Company Number: AU-JNJFOC-20110909798

PATIENT
  Sex: Female

DRUGS (4)
  1. HALDOL [Concomitant]
     Route: 065
  2. RISPERDAL [Suspect]
     Indication: SCHIZOPHRENIA
     Route: 065
  3. UNKNOWN MEDICATION [Suspect]
     Indication: PRODUCT USED FOR UNKNOWN INDICATION
     Route: 065
  4. RISPERDAL [Suspect]
     Route: 065

REACTIONS (7)
  - PRODUCT TAMPERING [None]
  - DIZZINESS [None]
  - FEELING ABNORMAL [None]
  - PRODUCT CONTAMINATION [None]
  - GRIEF REACTION [None]
  - EUPHORIC MOOD [None]
  - WRONG TECHNIQUE IN DRUG USAGE PROCESS [None]
